FAERS Safety Report 17355004 (Version 1)
Quarter: 2020Q1

REPORT INFORMATION
  Report Type: Spontaneous
  Country: US (occurrence: US)
  Receive Date: 20200116
  Receipt Date: 20200116
  Transmission Date: 20200409
  Serious: Yes (Death)
  Sender: FDA-Public Use
  Company Number: None

PATIENT
  Age: 69 Year
  Sex: Female

DRUGS (1)
  1. ESBRIET [Suspect]
     Active Substance: PIRFENIDONE
     Dosage: ?          OTHER FREQUENCY:Q8HRS ;?
     Route: 048
     Dates: start: 20190205

REACTIONS (1)
  - Death [None]

NARRATIVE: CASE EVENT DATE: 20200111
